FAERS Safety Report 18375070 (Version 1)
Quarter: 2020Q4

REPORT INFORMATION
  Report Type: Spontaneous
  Country: IN (occurrence: IN)
  Receive Date: 20201013
  Receipt Date: 20201013
  Transmission Date: 20210114
  Serious: Yes (Other)
  Sender: FDA-Public Use
  Company Number: IN-ALKEM-IN-ALKEM-2020-06465

PATIENT
  Age: 16 Year
  Sex: Female

DRUGS (1)
  1. ITRACONAZOLE. [Suspect]
     Active Substance: ITRACONAZOLE
     Indication: ONYCHOMYCOSIS
     Dosage: 400 MILLIGRAM, QD
     Route: 048

REACTIONS (1)
  - SJS-TEN overlap [Recovered/Resolved]
